FAERS Safety Report 6893103-3 (Version None)
Quarter: 2010Q3

REPORT INFORMATION
  Report Type: 
  Country: None (occurrence: None)
  Receive Date: 20100731
  Receipt Date: 20090521
  Transmission Date: 20110219
  Serious: No
  Sender: FDA-Public Use
  Company Number: US-PFIZER INC-2009216671

PATIENT
  Sex: Male

DRUGS (2)
  1. NORVASC [Suspect]
  2. ATENOLOL [Suspect]

REACTIONS (1)
  - DIZZINESS [None]
